FAERS Safety Report 6846404-9 (Version None)
Quarter: 2010Q3

REPORT INFORMATION
  Report Type: 
  Country: None (occurrence: None)
  Receive Date: 20100712
  Receipt Date: 20100706
  Transmission Date: 20110219
  Serious: Yes (Other)
  Sender: FDA-Public Use
  Company Number: 2010SP035162

PATIENT
  Age: 74 Year
  Sex: Female

DRUGS (4)
  1. MIRALAX [Suspect]
     Indication: ABDOMINAL DISTENSION
     Dosage: 17 GM; QD; PO
     Route: 048
     Dates: start: 20100406, end: 20100622
  2. MIRALAX [Suspect]
     Indication: CONSTIPATION
     Dosage: 17 GM; QD; PO
     Route: 048
     Dates: start: 20100406, end: 20100622
  3. MIRALAX [Suspect]
  4. STOOL SOFTNER [Concomitant]

REACTIONS (7)
  - ABDOMINAL PAIN UPPER [None]
  - CONDITION AGGRAVATED [None]
  - DEFAECATION URGENCY [None]
  - DIARRHOEA [None]
  - FAECAL INCONTINENCE [None]
  - FAECES DISCOLOURED [None]
  - FLATULENCE [None]
